FAERS Safety Report 4821920-X (Version None)
Quarter: 2005Q4

REPORT INFORMATION
  Report Type: 
  Country: None (occurrence: None)
  Receive Date: 20051107
  Receipt Date: 20050914
  Transmission Date: 20060501
  Serious: Yes (Hospitalization)
  Sender: FDA-Public Use
  Company Number: PHBS2005JP13542

PATIENT
  Age: 54 Year
  Sex: 0

DRUGS (3)
  1. DIOVAN [Suspect]
     Indication: HYPERTENSION
     Dosage: 40 MG, QD
     Route: 048
     Dates: start: 20020101, end: 20050823
  2. TAGAMET [Suspect]
     Indication: ABDOMINAL PAIN
     Dosage: 200 MG, BID
     Route: 048
     Dates: start: 20050822, end: 20050823
  3. SELBEX [Concomitant]
     Indication: ABDOMINAL PAIN
     Dosage: 50 MG, TID
     Route: 048
     Dates: start: 20050822, end: 20050823

REACTIONS (9)
  - ABDOMINAL PAIN [None]
  - DIARRHOEA [None]
  - DRUG INTERACTION [None]
  - ELECTROCARDIOGRAM QT PROLONGED [None]
  - HEART RATE DECREASED [None]
  - HYPOTENSION [None]
  - ILEUS [None]
  - LOSS OF CONSCIOUSNESS [None]
  - VOMITING [None]
